FAERS Safety Report 9228962 (Version 1)
Quarter: 2013Q2

REPORT INFORMATION
  Report Type: Spontaneous
  Country: FR (occurrence: FR)
  Receive Date: 20130412
  Receipt Date: 20130412
  Transmission Date: 20140414
  Serious: Yes (Hospitalization)
  Sender: FDA-Public Use
  Company Number: FR-ASTRAZENECA-2013SE21974

PATIENT
  Age: 18013 Day
  Sex: Male

DRUGS (9)
  1. CRESTOR [Suspect]
     Route: 048
     Dates: start: 201203, end: 20120410
  2. REMICADE [Suspect]
     Route: 042
     Dates: start: 200912
  3. REMICADE [Suspect]
     Route: 042
     Dates: start: 20120215
  4. REMICADE [Suspect]
     Route: 042
     Dates: start: 20120323
  5. REMICADE [Suspect]
     Route: 042
     Dates: start: 20120509
  6. FIVAZA [Concomitant]
  7. EFFEXOR [Concomitant]
  8. ARTERIN [Concomitant]
     Dates: start: 201104, end: 201203
  9. ARTERIN [Concomitant]
     Dates: start: 201206

REACTIONS (2)
  - Hypertriglyceridaemia [Not Recovered/Not Resolved]
  - Pancreatitis [Unknown]
